FAERS Safety Report 5690961-5 (Version None)
Quarter: 2008Q2

REPORT INFORMATION
  Report Type: 
  Country: None (occurrence: None)
  Receive Date: 20080401
  Receipt Date: 20080328
  Transmission Date: 20081010
  Serious: Yes (Life-Threatening)
  Sender: FDA-Public Use
  Company Number: US-SANOFI-SYNTHELABO-F01200800496

PATIENT
  Sex: Male

DRUGS (3)
  1. SODIUM CHLORIDE [Concomitant]
     Dosage: UNK
     Route: 042
  2. AVASTIN [Suspect]
     Route: 041
     Dates: start: 20080115, end: 20080115
  3. OXALIPLATIN [Suspect]
     Indication: COLORECTAL CANCER METASTATIC
     Route: 065
     Dates: start: 20080116, end: 20080116

REACTIONS (1)
  - TRANSIENT ISCHAEMIC ATTACK [None]
